FAERS Safety Report 5423278-4 (Version None)
Quarter: 2007Q3

REPORT INFORMATION
  Report Type: 
  Country: None (occurrence: None)
  Receive Date: 20070730
  Receipt Date: 20070403
  Transmission Date: 20080115
  Serious: Yes (Life-Threatening, Hospitalization)
  Sender: FDA-Public Use
  Company Number: 200710578BWH

PATIENT
  Age: 70 Year
  Sex: Female
  Weight: 58.0604 kg

DRUGS (9)
  1. AVELOX [Suspect]
     Indication: PNEUMONIA
     Dosage: INTRAVENOUS
     Route: 042
     Dates: start: 20070211, end: 20070212
  2. XOPENEX [Suspect]
     Indication: PNEUMONIA
  3. LIPITOR [Concomitant]
  4. DEMADEX [Concomitant]
  5. SYNTHROID [Concomitant]
  6. PAXIL [Concomitant]
  7. COREG [Concomitant]
  8. DETROL [Concomitant]
  9. PLETAL [Concomitant]

REACTIONS (1)
  - VENTRICULAR TACHYCARDIA [None]
